FAERS Safety Report 21548391 (Version 1)
Quarter: 2022Q4

REPORT INFORMATION
  Report Type: Spontaneous
  Country: RU (occurrence: RU)
  Receive Date: 20221103
  Receipt Date: 20221103
  Transmission Date: 20230112
  Serious: Yes (Other)
  Sender: FDA-Public Use
  Company Number: RU-AMGEN-RUSSP2022185740

PATIENT
  Age: 14 Year
  Sex: Female

DRUGS (1)
  1. NPLATE [Suspect]
     Active Substance: ROMIPLOSTIM
     Indication: Immune thrombocytopenia
     Dosage: 10 MICROGRAM/KILOGRAM
     Route: 065
     Dates: start: 2019

REACTIONS (3)
  - Cerebral haemorrhage [Recovered/Resolved]
  - Platelet count decreased [Unknown]
  - Thrombocytosis [Unknown]

NARRATIVE: CASE EVENT DATE: 20210101
